FAERS Safety Report 8272752-4 (Version None)
Quarter: 2012Q2

REPORT INFORMATION
  Report Type: 
  Country: None (occurrence: None)
  Receive Date: 20120411
  Receipt Date: 20120403
  Transmission Date: 20120825
  Serious: Yes (Other)
  Sender: FDA-Public Use
  Company Number: US-AMGEN-USASP2012021296

PATIENT
  Sex: Female

DRUGS (2)
  1. VITAMIN D [Concomitant]
     Dosage: UNK IU/KG, UNK
  2. ENBREL [Suspect]
     Indication: PRODUCT USED FOR UNKNOWN INDICATION
     Dosage: 50 MG, QWK
     Dates: start: 20101201

REACTIONS (2)
  - VULVAL CANCER [None]
  - VITAMIN D DECREASED [None]
